FAERS Safety Report 7394840-7 (Version None)
Quarter: 2011Q2

REPORT INFORMATION
  Report Type: 
  Country: None (occurrence: None)
  Receive Date: 20110405
  Receipt Date: 20110328
  Transmission Date: 20111010
  Serious: Yes (Other)
  Sender: FDA-Public Use
  Company Number: A0902516A

PATIENT
  Age: 44 Year
  Sex: Female

DRUGS (3)
  1. ZOLOFT [Concomitant]
  2. PROZAC [Concomitant]
  3. ADVAIR DISKUS 100/50 [Suspect]
     Indication: ASTHMA
     Dosage: 1PUFF PER DAY
     Route: 055
     Dates: start: 20080101

REACTIONS (8)
  - DRUG DOSE OMISSION [None]
  - VISUAL IMPAIRMENT [None]
  - ECONOMIC PROBLEM [None]
  - DECREASED APPETITE [None]
  - HALLUCINATION, AUDITORY [None]
  - VISION BLURRED [None]
  - PHOTOPSIA [None]
  - DRUG ADMINISTRATION ERROR [None]
